FAERS Safety Report 7780528-7 (Version None)
Quarter: 2011Q3

REPORT INFORMATION
  Report Type: 
  Country: None (occurrence: None)
  Receive Date: 20110923
  Receipt Date: 20110907
  Transmission Date: 20111222
  Serious: Yes (Death, Other)
  Sender: FDA-Public Use
  Company Number: OPIR20110032

PATIENT
  Age: 17 Year
  Sex: Male

DRUGS (4)
  1. HEROIN (DIAMORPHINE) (INJECTION) [Suspect]
     Indication: DRUG ABUSE
     Dosage: INJECTION
  2. XANAX [Suspect]
     Indication: DRUG ABUSE
     Dosage: INTRA-NASAL
     Route: 045
  3. OPANA [Suspect]
     Indication: DRUG ABUSE
     Dosage: ORAL
     Route: 048
  4. OXYCODONE HCL [Suspect]
     Indication: DRUG ABUSE

REACTIONS (10)
  - PULMONARY OEDEMA [None]
  - TOXICITY TO VARIOUS AGENTS [None]
  - DRUG ABUSE [None]
  - PULMONARY CONGESTION [None]
  - DRUG DIVERSION [None]
  - RESPIRATORY ARREST [None]
  - MULTIPLE DRUG OVERDOSE [None]
  - LOSS OF CONSCIOUSNESS [None]
  - BRONCHOPNEUMONIA [None]
  - ACCIDENTAL DEATH [None]
